FAERS Safety Report 5160921-1 (Version None)
Quarter: 2006Q4

REPORT INFORMATION
  Report Type: 
  Country: None (occurrence: None)
  Receive Date: 20061130
  Receipt Date: 20061106
  Transmission Date: 20070319
  Serious: Yes (Life-Threatening)
  Sender: FDA-Public Use
  Company Number: JP-ABBOTT-06P-087-0349603-00

PATIENT
  Sex: Male

DRUGS (12)
  1. SEVOFLURANE [Suspect]
     Indication: GENERAL ANAESTHESIA
     Dosage: DAILY DOSE: 0.4-1%
     Route: 055
     Dates: start: 20060603, end: 20060603
  2. VECURONIUM BROMIDE [Concomitant]
     Indication: MUSCLE RELAXANT THERAPY
     Route: 042
     Dates: start: 20060603, end: 20060603
  3. PROPOFOL [Concomitant]
     Indication: INDUCTION OF ANAESTHESIA
     Route: 042
     Dates: start: 20060603, end: 20060603
  4. MIDAZOLAM [Concomitant]
     Indication: SEDATION
     Route: 042
     Dates: start: 20060603, end: 20060603
  5. PENTAZOCINE LACTATE [Concomitant]
     Indication: SEDATION
     Route: 042
     Dates: start: 20060603, end: 20060603
  6. PENTAZOCINE LACTATE [Concomitant]
     Indication: ANALGESIC THERAPY
     Route: 042
     Dates: start: 20060603, end: 20060603
  7. NITROUS OXIDE W/ OXYGEN [Concomitant]
     Indication: ANALGESIC THERAPY
     Dosage: DAILY DOSE: 15-67%
     Route: 055
     Dates: start: 20060603, end: 20060603
  8. EPHEDRINE [Concomitant]
     Indication: BLOOD PRESSURE MANAGEMENT
     Route: 042
     Dates: start: 20060603, end: 20060603
  9. FUROSEMIDE [Concomitant]
     Indication: PULMONARY OEDEMA
     Route: 042
     Dates: start: 20060603, end: 20060603
  10. FUROSEMIDE [Concomitant]
     Indication: PROPHYLAXIS
     Route: 042
     Dates: start: 20060603, end: 20060603
  11. ATROPINE [Concomitant]
     Indication: ANAESTHESIA REVERSAL
     Route: 042
     Dates: start: 20060603, end: 20060603
  12. NESOTIGMINE METHYLSULFATE [Concomitant]
     Indication: ANAESTHESIA REVERSAL
     Route: 042
     Dates: start: 20060603, end: 20060603

REACTIONS (1)
  - HYPOXIA [None]
